FAERS Safety Report 10975788 (Version 2)
Quarter: 2015Q2

REPORT INFORMATION
  Report Type: Spontaneous
  Country: US (occurrence: US)
  Receive Date: 20150401
  Receipt Date: 20150622
  Transmission Date: 20150821
  Serious: Yes (Hospitalization, Other)
  Sender: FDA-Public Use
  Company Number: US-PFIZER INC-2015108637

PATIENT
  Age: 42 Year
  Sex: Female
  Weight: 80 kg

DRUGS (30)
  1. AVINZA [Concomitant]
     Active Substance: MORPHINE SULFATE
     Indication: PAIN
     Dosage: 60 MG CAPSULE IN MORNING AND 60 MG AND 30 MG IN THE EVENING
     Route: 048
     Dates: start: 1996
  2. TEMAZEPAM. [Concomitant]
     Active Substance: TEMAZEPAM
     Indication: SLEEP DISORDER
     Dosage: UNK, 1X/DAY
     Route: 048
     Dates: start: 2012
  3. DIAZEPAM. [Concomitant]
     Active Substance: DIAZEPAM
     Indication: DEPRESSION
  4. PEPCID [Concomitant]
     Active Substance: FAMOTIDINE
     Indication: ABDOMINAL DISCOMFORT
     Dosage: 20 MG, 2X/DAY
     Route: 048
     Dates: start: 2014
  5. XYZAL [Concomitant]
     Active Substance: LEVOCETIRIZINE DIHYDROCHLORIDE
     Indication: SEASONAL ALLERGY
     Dosage: 5 MG, 1X/DAY
     Route: 048
     Dates: start: 2014
  6. LYRICA [Suspect]
     Active Substance: PREGABALIN
     Indication: RESTLESS LEGS SYNDROME
  7. DEXILANT [Concomitant]
     Active Substance: DEXLANSOPRAZOLE
     Indication: ABDOMINAL DISCOMFORT
     Dosage: 60 MG, 1X/DAY
     Route: 048
     Dates: start: 2014
  8. AMRIX [Concomitant]
     Active Substance: CYCLOBENZAPRINE HYDROCHLORIDE
     Indication: MUSCLE SPASMS
     Dosage: 15 MG, 1X/DAY
     Route: 048
     Dates: start: 1997
  9. DIAZEPAM. [Concomitant]
     Active Substance: DIAZEPAM
     Indication: ANXIETY
  10. LOPRESSOR [Concomitant]
     Active Substance: METOPROLOL TARTRATE
     Indication: CARDIAC DISORDER
     Dosage: 25 MG, 2X/DAY
     Route: 048
     Dates: start: 2014
  11. DURAGESIC [Concomitant]
     Active Substance: FENTANYL
     Indication: PAIN
     Dosage: 50 ?G, EVERY 72 HOURS
     Route: 061
     Dates: start: 2014
  12. AMITIZA [Concomitant]
     Active Substance: LUBIPROSTONE
     Indication: CONSTIPATION
     Dosage: 25 MG, 2X/DAY
     Route: 048
     Dates: start: 2012
  13. LYRICA [Suspect]
     Active Substance: PREGABALIN
     Indication: PAIN
     Dosage: 150, 1X/DAY 3:00-P.M
     Dates: start: 1992
  14. BAYER WOMENS ASPIRIN PLUS CALCIUM [Concomitant]
     Indication: ANTICOAGULANT THERAPY
     Dosage: 81 MG, 1X/DAY
     Route: 048
     Dates: start: 1985
  15. BENADRYL [Concomitant]
     Active Substance: DIPHENHYDRAMINE HYDROCHLORIDE
     Indication: HYPERSENSITIVITY
     Dosage: 25 MG, 2X/DAY
     Route: 048
     Dates: start: 1983
  16. DIAZEPAM. [Concomitant]
     Active Substance: DIAZEPAM
     Indication: NERVOUSNESS
     Dosage: 10 MG, 2X/DAY
     Route: 048
     Dates: start: 1998
  17. DIAZEPAM. [Concomitant]
     Active Substance: DIAZEPAM
     Indication: FIBROMYALGIA
  18. DILAUDID [Concomitant]
     Active Substance: HYDROMORPHONE HYDROCHLORIDE
     Indication: BREAKTHROUGH PAIN
     Dosage: 2 MG, UP TO 4 TIMES A DAY
     Route: 048
     Dates: start: 2014
  19. DIAZEPAM. [Concomitant]
     Active Substance: DIAZEPAM
     Indication: COMPLEX REGIONAL PAIN SYNDROME
  20. THEOPHYLLINE [Concomitant]
     Active Substance: THEOPHYLLINE ANHYDROUS
     Indication: ASTHMA
     Dosage: 400 MG, 2X/DAY
     Route: 048
     Dates: start: 1980
  21. LYRICA [Suspect]
     Active Substance: PREGABALIN
     Indication: FIBROMYALGIA
     Dosage: 150 MG, 1X/DAY
  22. SYNTHROID [Concomitant]
     Active Substance: LEVOTHYROXINE SODIUM
     Indication: HYPOTHYROIDISM
     Dosage: 50 MG, 1X/DAY
     Route: 048
     Dates: start: 1989
  23. WELLBUTRIN [Concomitant]
     Active Substance: BUPROPION HYDROCHLORIDE
     Indication: DEPRESSION
     Dosage: 150 MG, 1X/DAY
     Route: 048
     Dates: start: 1997
  24. ROZEREM [Concomitant]
     Active Substance: RAMELTEON
     Indication: COMPLEX REGIONAL PAIN SYNDROME
     Dosage: 8 MG, 1X/DAY
     Route: 048
     Dates: start: 1995
  25. VENTOLIN [Concomitant]
     Active Substance: ALBUTEROL SULFATE
     Indication: ASTHMA
     Dosage: 2 PUFFS, AS NEEDED-2X/DAY
     Dates: start: 2014
  26. ADVAIR DISKUS [Concomitant]
     Active Substance: FLUTICASONE PROPIONATE\SALMETEROL XINAFOATE
     Indication: ASTHMA
     Dosage: 250/50 MCG 2 PUFFS, 2X/DAY
     Dates: start: 1994
  27. CELEBREX [Concomitant]
     Active Substance: CELECOXIB
     Indication: ARTHRITIS
     Dosage: 200 MG, 1X/DAY
     Route: 048
     Dates: start: 2014
  28. POTASSIUM [Concomitant]
     Active Substance: POTASSIUM
     Indication: SUPPLEMENTATION THERAPY
     Dosage: 10 MG, 1X/DAY
     Route: 048
     Dates: start: 2005
  29. PATANASE [Concomitant]
     Active Substance: OLOPATADINE HYDROCHLORIDE
     Indication: HYPERSENSITIVITY
     Dosage: NASAL MIST TWICE A DAY , AS NEEDED-2X/DAY
     Dates: start: 1995
  30. PATADAY [Concomitant]
     Active Substance: OLOPATADINE HYDROCHLORIDE
     Indication: HYPERSENSITIVITY
     Dosage: 1.2 % LIQUID EYE DROPS, 1 DROP EACH EYE TWICE A DAY
     Dates: start: 1995

REACTIONS (10)
  - Alopecia [Not Recovered/Not Resolved]
  - Limb injury [Unknown]
  - Rotator cuff syndrome [Unknown]
  - Uterine prolapse [Unknown]
  - Fatigue [Unknown]
  - Oesophageal irritation [Unknown]
  - Weight decreased [Not Recovered/Not Resolved]
  - Peripheral nerve injury [Unknown]
  - Vision blurred [Not Recovered/Not Resolved]
  - Bladder prolapse [Unknown]

NARRATIVE: CASE EVENT DATE: 1993
